FAERS Safety Report 17056272 (Version 4)
Quarter: 2020Q1

REPORT INFORMATION
  Report Type: Spontaneous
  Country: US (occurrence: US)
  Receive Date: 20191121
  Receipt Date: 20200121
  Transmission Date: 20200409
  Serious: No
  Sender: FDA-Public Use
  Company Number: US-BIOGEN-2019BI00801888

PATIENT
  Age: 61 Year
  Sex: Female

DRUGS (5)
  1. PLEGRIDY [Suspect]
     Active Substance: PEGINTERFERON BETA-1A
     Indication: MULTIPLE SCLEROSIS
     Route: 058
     Dates: start: 20191015
  2. PLEGRIDY [Suspect]
     Active Substance: PEGINTERFERON BETA-1A
     Route: 065
     Dates: start: 20191014
  3. PLEGRIDY [Suspect]
     Active Substance: PEGINTERFERON BETA-1A
     Indication: MULTIPLE SCLEROSIS
     Route: 058
  4. PLEGRIDY [Suspect]
     Active Substance: PEGINTERFERON BETA-1A
     Route: 058
     Dates: start: 20191028
  5. PLEGRIDY [Suspect]
     Active Substance: PEGINTERFERON BETA-1A
     Route: 065

REACTIONS (6)
  - Influenza like illness [Not Recovered/Not Resolved]
  - Confusional state [Unknown]
  - Product dose omission [Recovered/Resolved]
  - Injection site pruritus [Unknown]
  - Injection site irritation [Not Recovered/Not Resolved]
  - Drug delivery system malfunction [Recovered/Resolved]

NARRATIVE: CASE EVENT DATE: 20191015
